FAERS Safety Report 5531689-1 (Version None)
Quarter: 2007Q4

REPORT INFORMATION
  Report Type: 
  Country: None (occurrence: None)
  Receive Date: 20071119
  Receipt Date: 20070824
  Transmission Date: 20080405
  Serious: No
  Sender: FDA-Public Use
  Company Number: TPA2007A01802

PATIENT
  Age: 61 Year
  Sex: Male
  Weight: 69.8539 kg

DRUGS (2)
  1. ROZEREM [Suspect]
     Indication: INITIAL INSOMNIA
     Dosage: 8 MG, 1 IN 1 D, PER ORAL
     Route: 048
     Dates: start: 20070823
  2. KLONOPIN [Suspect]
     Indication: SLEEP DISORDER
     Dosage: 0.5 MG, 2 IN 1 D, PER ORAL
     Route: 048

REACTIONS (5)
  - ASTHENIA [None]
  - HANGOVER [None]
  - HEADACHE [None]
  - NAUSEA [None]
  - SOMNOLENCE [None]
